FAERS Safety Report 17057538 (Version 2)
Quarter: 2019Q4

REPORT INFORMATION
  Report Type: Spontaneous
  Country: US (occurrence: US)
  Receive Date: 20191121
  Receipt Date: 20191127
  Transmission Date: 20200122
  Serious: No
  Sender: FDA-Public Use
  Company Number: US-HORIZON-KRY-1047-2019

PATIENT
  Age: 73 Year
  Sex: Male

DRUGS (10)
  1. KRYSTEXXA [Suspect]
     Active Substance: PEGLOTICASE
     Indication: GOUT
     Dosage: 8MG EVERY TWO WEEKS
     Route: 042
     Dates: start: 20191031
  2. CO-ENZYME Q [Concomitant]
  3. ROSUVASTATIN. [Concomitant]
     Active Substance: ROSUVASTATIN
  4. ZETIA [Concomitant]
     Active Substance: EZETIMIBE
  5. SOLU-MEDROL [Concomitant]
     Active Substance: METHYLPREDNISOLONE SODIUM SUCCINATE
     Indication: PREMEDICATION
  6. OMEGA-3 FATTY ACIDS [Concomitant]
     Active Substance: OMEGA-3 FATTY ACIDS
  7. AMLODIPINE [Concomitant]
     Active Substance: AMLODIPINE BESYLATE
  8. LOSARTAN. [Concomitant]
     Active Substance: LOSARTAN
  9. BENADRYL [Concomitant]
     Active Substance: DIPHENHYDRAMINE HYDROCHLORIDE
     Indication: PREMEDICATION
  10. DOXAZOSIN [Concomitant]
     Active Substance: DOXAZOSIN MESYLATE

REACTIONS (3)
  - Erythema [Recovered/Resolved]
  - Ocular discomfort [Recovered/Resolved]
  - Gout [Unknown]

NARRATIVE: CASE EVENT DATE: 20191116
